FAERS Safety Report 6713966-1 (Version None)
Quarter: 2010Q2

REPORT INFORMATION
  Report Type: 
  Country: None (occurrence: None)
  Receive Date: 20100506
  Receipt Date: 20100426
  Transmission Date: 20101027
  Serious: Yes (Other)
  Sender: FDA-Public Use
  Company Number: US-JNJFOC-20100406819

PATIENT
  Age: 7 Year
  Sex: Male
  Weight: 20 kg

DRUGS (16)
  1. REMICADE [Suspect]
     Indication: JUVENILE ARTHRITIS
     Route: 042
  2. CALCIUM CARBONATE [Concomitant]
  3. ROCALTROL [Concomitant]
  4. SINGULAIR [Concomitant]
  5. FLOVENT [Concomitant]
  6. ERYPED [Concomitant]
  7. TRILEPTAL [Concomitant]
  8. BENADRYL [Concomitant]
  9. RHINOCORT [Concomitant]
  10. RANITIDINE [Concomitant]
  11. PREVACID [Concomitant]
  12. ATROVENT [Concomitant]
  13. NYSTATIN [Concomitant]
  14. MIRALAX [Concomitant]
  15. LACTOBACILLUS ACIDOPHILUS [Concomitant]
  16. SIMETHICONE [Concomitant]

REACTIONS (1)
  - INFUSION RELATED REACTION [None]
